FAERS Safety Report 16103249 (Version 1)
Quarter: 2019Q1

REPORT INFORMATION
  Report Type: Spontaneous
  Country: AU (occurrence: AU)
  Receive Date: 20190322
  Receipt Date: 20190322
  Transmission Date: 20190418
  Serious: Yes (Other)
  Sender: FDA-Public Use
  Company Number: AU-B.I. PHARMACEUTICALS,INC./RIDGEFIELD-2019-BI-012295

PATIENT
  Age: 76 Year
  Sex: Male

DRUGS (2)
  1. IDARUCIZUMAB [Concomitant]
     Active Substance: IDARUCIZUMAB
     Indication: PRODUCT USED FOR UNKNOWN INDICATION
     Route: 048
  2. PRADAXA [Suspect]
     Active Substance: DABIGATRAN ETEXILATE MESYLATE
     Indication: DEEP VEIN THROMBOSIS
     Route: 065

REACTIONS (6)
  - Pneumonia aspiration [Unknown]
  - Intracranial venous sinus thrombosis [Not Recovered/Not Resolved]
  - Gastrointestinal haemorrhage [Unknown]
  - Deep vein thrombosis [Unknown]
  - Thalamus haemorrhage [Unknown]
  - Basal ganglia stroke [Unknown]
